FAERS Safety Report 19678143 (Version 1)
Quarter: 2021Q3

REPORT INFORMATION
  Report Type: Spontaneous
  Country: ID (occurrence: ID)
  Receive Date: 20210810
  Receipt Date: 20210810
  Transmission Date: 20211014
  Serious: Yes (Other)
  Sender: FDA-Public Use
  Company Number: ID-SUN PHARMACEUTICAL INDUSTRIES LTD-2021RR-307020

PATIENT
  Age: 68 Year
  Sex: Male

DRUGS (9)
  1. ASPILET [Suspect]
     Active Substance: ASPIRIN
     Indication: COVID-19
     Dosage: UNK
     Route: 065
  2. VITAMIN B [Suspect]
     Active Substance: VITAMIN B
     Indication: COVID-19
     Dosage: UNK
     Route: 065
  3. AZITHROMYCIN ANHYDROUS. [Suspect]
     Active Substance: AZITHROMYCIN ANHYDROUS
     Indication: COVID-19
     Dosage: UNK
     Route: 065
  4. VITAMIN C [Suspect]
     Active Substance: ASCORBIC ACID
     Indication: COVID-19
     Dosage: UNK
     Route: 065
  5. CLOPIDOGREL [Suspect]
     Active Substance: CLOPIDOGREL BISULFATE
     Indication: COVID-19
     Dosage: UNK
     Route: 065
  6. ZINC. [Suspect]
     Active Substance: ZINC
     Indication: COVID-19
     Dosage: UNK
     Route: 065
  7. CEFTRIAXONE. [Suspect]
     Active Substance: CEFTRIAXONE
     Indication: COVID-19
     Dosage: UNK
     Route: 065
  8. CITICOLINE [Suspect]
     Active Substance: CITICOLINE
     Indication: COVID-19
     Dosage: UNK
     Route: 065
  9. ACETAMINOPHEN. [Suspect]
     Active Substance: ACETAMINOPHEN
     Indication: COVID-19
     Dosage: UNK
     Route: 065

REACTIONS (2)
  - Drug ineffective [Unknown]
  - Off label use [Unknown]
